FAERS Safety Report 7591437-0 (Version None)
Quarter: 2011Q3

REPORT INFORMATION
  Report Type: 
  Country: None (occurrence: None)
  Receive Date: 20110701
  Receipt Date: 20110701
  Transmission Date: 20111222
  Serious: Yes (Other)
  Sender: FDA-Public Use
  Company Number: None

PATIENT
  Age: 41 Year
  Sex: Female
  Weight: 79.3795 kg

DRUGS (2)
  1. DEXILANT [Suspect]
     Indication: DYSPEPSIA
     Dosage: 1 ONCE A DAY PO
     Route: 048
     Dates: start: 20110628, end: 20110628
  2. DEXILANT [Suspect]
     Indication: GASTROOESOPHAGEAL REFLUX DISEASE
     Dosage: 1 ONCE A DAY PO
     Route: 048
     Dates: start: 20110628, end: 20110628

REACTIONS (3)
  - PRURITUS [None]
  - RASH [None]
  - PAIN IN EXTREMITY [None]
